FAERS Safety Report 6986697-0 (Version None)
Quarter: 2010Q3

REPORT INFORMATION
  Report Type: 
  Country: None (occurrence: None)
  Receive Date: 20100915
  Receipt Date: 20090722
  Transmission Date: 20110219
  Serious: No
  Sender: FDA-Public Use
  Company Number: US-WYE-H10272809

PATIENT
  Sex: Male
  Weight: 63.56 kg

DRUGS (2)
  1. PRISTIQ [Suspect]
     Indication: DEPRESSION
     Route: 048
     Dates: start: 20090720
  2. VICODIN [Concomitant]
     Indication: BACK PAIN
     Dosage: DOSE UNKNOWN, AS NEEDED
     Route: 065

REACTIONS (2)
  - DRY MOUTH [None]
  - PREMATURE EJACULATION [None]
